FAERS Safety Report 5219256-0 (Version None)
Quarter: 2007Q1

REPORT INFORMATION
  Report Type: 
  Country: None (occurrence: None)
  Receive Date: 20070125
  Receipt Date: 20070118
  Transmission Date: 20070707
  Serious: Yes (Hospitalization)
  Sender: FDA-Public Use
  Company Number: 2007CG00127

PATIENT
  Age: 94 Year
  Sex: Female
  Weight: 51 kg

DRUGS (7)
  1. ATACAND [Suspect]
     Route: 048
     Dates: end: 20061204
  2. MIANSERINE [Suspect]
     Indication: DYSTHYMIC DISORDER
     Route: 048
  3. RISPERDAL [Suspect]
     Indication: PSYCHOTIC DISORDER
     Route: 048
  4. ASPIRIN [Suspect]
     Route: 048
  5. CARDENSIEL [Suspect]
     Route: 048
  6. TRINIPATCH [Suspect]
     Route: 062
     Dates: end: 20061204
  7. XANAX [Concomitant]

REACTIONS (9)
  - ARTHRALGIA [None]
  - ATRIAL FIBRILLATION [None]
  - BLOOD PRESSURE INCREASED [None]
  - BODY TEMPERATURE INCREASED [None]
  - CREATININE RENAL CLEARANCE DECREASED [None]
  - DEHYDRATION [None]
  - FALL [None]
  - HAEMATOMA [None]
  - ORTHOSTATIC HYPOTENSION [None]
